FAERS Safety Report 16052351 (Version 1)
Quarter: 2019Q1

REPORT INFORMATION
  Report Type: Spontaneous
  Country: US (occurrence: US)
  Receive Date: 20190308
  Receipt Date: 20190308
  Transmission Date: 20190418
  Serious: No
  Sender: FDA-Public Use
  Company Number: US-009507513-1903USA000974

PATIENT
  Sex: Female
  Weight: 99.7 kg

DRUGS (1)
  1. CELESTONE SOLUSPAN [Suspect]
     Active Substance: BETAMETHASONE ACETATE\BETAMETHASONE SODIUM PHOSPHATE
     Dosage: UNK

REACTIONS (4)
  - Treatment failure [Unknown]
  - Lipohypertrophy [Unknown]
  - Rash [Unknown]
  - Swelling [Unknown]
